FAERS Safety Report 20993686 (Version 1)
Quarter: 2022Q2

REPORT INFORMATION
  Report Type: Spontaneous
  Country: US (occurrence: None)
  Receive Date: 20220622
  Receipt Date: 20220622
  Transmission Date: 20220721
  Serious: Yes (Hospitalization)
  Sender: FDA-Public Use
  Company Number: None

PATIENT
  Age: 83 Year
  Sex: Female

DRUGS (9)
  1. CAPECITABINE [Suspect]
     Active Substance: CAPECITABINE
     Indication: Breast cancer female
     Dosage: FREQUENCY : TWICE A DAY;?
     Route: 048
  2. BUDESONIDE [Concomitant]
  3. CETIRIZINE [Concomitant]
  4. DENOSUMAB [Concomitant]
  5. EFFEXOR [Concomitant]
  6. FAMOTIDINE [Concomitant]
  7. LETROZOLE [Concomitant]
  8. LEVOTHYROXINE [Concomitant]
  9. STOOL SOFTENER (DOCUSATE) [Concomitant]
     Active Substance: DOCUSATE

REACTIONS (2)
  - Pneumonia [None]
  - Pulmonary oedema [None]
